FAERS Safety Report 9665557 (Version 1)
Quarter: 2013Q4

REPORT INFORMATION
  Report Type: Spontaneous
  Country: US (occurrence: None)
  Receive Date: 20131031
  Receipt Date: 20131031
  Transmission Date: 20140711
  Serious: Yes (Hospitalization)
  Sender: FDA-Public Use
  Company Number: None

PATIENT
  Age: 53 Year
  Sex: Male
  Weight: 88.4 kg

DRUGS (14)
  1. LINEZOLID [Suspect]
     Indication: ENTEROCOCCAL BACTERAEMIA
     Route: 042
     Dates: start: 20110610, end: 20110619
  2. ASPIRIN [Concomitant]
  3. BISACODYL [Concomitant]
  4. CALCIUM ACETATE [Concomitant]
  5. CHLORHEXIDINE [Concomitant]
  6. CITALOPRAM [Concomitant]
  7. DIPYRIDAMOLE [Concomitant]
  8. DOCUSATE [Concomitant]
  9. LANSOPRAZOLE [Concomitant]
  10. LEVOFLOXACIN [Concomitant]
  11. LOPERAMIDE [Concomitant]
  12. METRONIDAZOLE [Concomitant]
  13. SENNA [Concomitant]
  14. HEPARIN [Concomitant]

REACTIONS (1)
  - Platelet count decreased [None]
